FAERS Safety Report 5906275-1 (Version None)
Quarter: 2008Q4

REPORT INFORMATION
  Report Type: 
  Country: None (occurrence: None)
  Receive Date: 20081002
  Receipt Date: 20080927
  Transmission Date: 20090506
  Serious: Yes (Other)
  Sender: FDA-Public Use
  Company Number: US-PFIZER INC-2008081728

PATIENT
  Sex: Female
  Weight: 54.545 kg

DRUGS (4)
  1. LIPITOR [Suspect]
     Indication: BLOOD CHOLESTEROL INCREASED
     Route: 047
     Dates: start: 20080501, end: 20080924
  2. NIFEDIPINE [Concomitant]
  3. METOPROLOL TARTRATE [Concomitant]
  4. ATENOLOL [Concomitant]

REACTIONS (2)
  - ABASIA [None]
  - MYALGIA [None]
